FAERS Safety Report 9175694 (Version 1)
Quarter: 2013Q1

REPORT INFORMATION
  Report Type: Spontaneous
  Country: US (occurrence: US)
  Receive Date: 20130320
  Receipt Date: 20130320
  Transmission Date: 20140127
  Serious: Yes (Death)
  Sender: FDA-Public Use
  Company Number: US-JNJFOC-20090803374

PATIENT
  Age: 43 Year
  Sex: Male

DRUGS (2)
  1. IBUPROFEN [Suspect]
     Indication: INTENTIONAL OVERDOSE
     Dosage: ONCE
     Route: 048
  2. ASPIRIN [Suspect]
     Indication: INTENTIONAL OVERDOSE
     Dosage: ONCE
     Route: 048

REACTIONS (6)
  - Death [Fatal]
  - Suicide attempt [Fatal]
  - Hyperhidrosis [Fatal]
  - Tachycardia [Fatal]
  - Pyrexia [Fatal]
  - Cardiac arrest [Fatal]
